FAERS Safety Report 4424896-2 (Version None)
Quarter: 2004Q3

REPORT INFORMATION
  Report Type: 
  Country: None (occurrence: None)
  Receive Date: 20040809
  Receipt Date: 20040803
  Transmission Date: 20050211
  Serious: Yes (Death, Hospitalization)
  Sender: FDA-Public Use
  Company Number: F01200402268

PATIENT
  Age: 73 Year
  Sex: Male

DRUGS (2)
  1. OXALIPLATIN) - SOLUTION - 193 MG [Suspect]
     Indication: NON-SMALL CELL LUNG CANCER
     Dosage: 193 MG Q3W (CUMULATIVE DOSE: 396),  INTRAVENOUS NOS
     Route: 042
     Dates: start: 20040706, end: 20040706
  2. GEMCITABINE -  SOLUTION 1862 MG [Suspect]
     Dosage: 1862 MG ON DAY 1 AND DAY 8 , Q3W (CUMULATIVE DOSE: 7624 MG); INTRAVENOUS NOS
     Route: 042
     Dates: start: 20040713, end: 20040714

REACTIONS (5)
  - CACHEXIA [None]
  - GENERAL PHYSICAL HEALTH DETERIORATION [None]
  - HYPERCALCAEMIA [None]
  - MUCOSAL INFLAMMATION [None]
  - OESOPHAGEAL DISORDER [None]
